FAERS Safety Report 9723960 (Version 1)
Quarter: 2013Q4

REPORT INFORMATION
  Report Type: Spontaneous
  Country: GB (occurrence: GB)
  Receive Date: 20131202
  Receipt Date: 20131202
  Transmission Date: 20140711
  Serious: Yes (Other)
  Sender: FDA-Public Use
  Company Number: GB-PFIZER INC-2013337369

PATIENT
  Age: 39 Year
  Sex: Female
  Weight: 72.11 kg

DRUGS (2)
  1. CLINDAMYCIN PHOSPHATE [Suspect]
     Indication: INFECTION
     Dosage: 300 MG, UNK
     Route: 042
     Dates: start: 20131107
  2. CLINDAMYCIN PHOSPHATE [Suspect]
     Dosage: 300 MG, UNK VIA TABLET
     Route: 048
     Dates: start: 20131107

REACTIONS (3)
  - Tearfulness [Not Recovered/Not Resolved]
  - Chest discomfort [Not Recovered/Not Resolved]
  - Emotional disorder [Not Recovered/Not Resolved]
